FAERS Safety Report 8959133 (Version 2)
Quarter: 2013Q2

REPORT INFORMATION
  Report Type: Spontaneous
  Country: US (occurrence: US)
  Receive Date: 20121212
  Receipt Date: 20130426
  Transmission Date: 20140414
  Serious: No
  Sender: FDA-Public Use
  Company Number: US-009507513-1212USA003099

PATIENT
  Sex: Female

DRUGS (3)
  1. NUVARING [Suspect]
     Dosage: 0.015 ETONOGESTREL/0.12 ETHINYL ESTRADIOL ONE RING  EVERY THREE OR FOUR WEEKS
     Route: 067
  2. NUVARING [Suspect]
     Dosage: UNK
  3. PROTONIX [Concomitant]

REACTIONS (3)
  - Metrorrhagia [Unknown]
  - Incorrect drug administration duration [Unknown]
  - Product quality issue [Unknown]
